FAERS Safety Report 8587217-X (Version None)
Quarter: 2012Q3

REPORT INFORMATION
  Report Type: 
  Country: None (occurrence: None)
  Receive Date: 20120810
  Receipt Date: 20111130
  Transmission Date: 20120928
  Serious: Yes (Other)
  Sender: FDA-Public Use
  Company Number: US-ASTRAZENECA-2011SE45986

PATIENT
  Age: 76 Year
  Sex: Female

DRUGS (3)
  1. OMEPRAZOLE [Suspect]
     Route: 048
  2. ARIMIDEX [Suspect]
     Route: 048
  3. NEXIUM [Suspect]
     Route: 048

REACTIONS (5)
  - ERUCTATION [None]
  - ABDOMINAL DISCOMFORT [None]
  - UPPER LIMB FRACTURE [None]
  - DYSPEPSIA [None]
  - ABDOMINAL PAIN UPPER [None]
